FAERS Safety Report 22295603 (Version 2)
Quarter: 2024Q1

REPORT INFORMATION
  Report Type: Spontaneous
  Country: US (occurrence: US)
  Receive Date: 20230508
  Receipt Date: 20240109
  Transmission Date: 20240410
  Serious: Yes (Other)
  Sender: FDA-Public Use
  Company Number: US-PFIZER INC-PV202300081063

PATIENT
  Age: 79 Year
  Sex: Male

DRUGS (2)
  1. XELJANZ XR [Suspect]
     Active Substance: TOFACITINIB CITRATE
     Indication: Rheumatoid arthritis
     Dosage: UNK
     Dates: start: 202106
  2. XELJANZ XR [Suspect]
     Active Substance: TOFACITINIB CITRATE
     Dosage: TAKE 1 TABLET BY MOUTH EVERY DAY
     Route: 048

REACTIONS (9)
  - Idiopathic pulmonary fibrosis [Unknown]
  - Vertebroplasty [Unknown]
  - Back pain [Not Recovered/Not Resolved]
  - Compression fracture [Unknown]
  - Osteoporosis [Unknown]
  - Musculoskeletal stiffness [Unknown]
  - Peripheral coldness [Unknown]
  - Movement disorder [Unknown]
  - Dyspnoea [Unknown]

NARRATIVE: CASE EVENT DATE: 20210101
